FAERS Safety Report 14132442 (Version 2)
Quarter: 2017Q4

REPORT INFORMATION
  Report Type: Report from Study
  Country: US (occurrence: US)
  Receive Date: 20171027
  Receipt Date: 20171102
  Transmission Date: 20180321
  Serious: No
  Sender: FDA-Public Use
  Company Number: PHEH2017US034664

PATIENT
  Age: 35 Year
  Sex: Female

DRUGS (1)
  1. GILENYA [Suspect]
     Active Substance: FINGOLIMOD HYDROCHLORIDE
     Indication: RELAPSING-REMITTING MULTIPLE SCLEROSIS
     Dosage: 0.5 MG, QD
     Route: 048
     Dates: start: 20170929

REACTIONS (6)
  - Herpes zoster [Unknown]
  - Influenza like illness [Not Recovered/Not Resolved]
  - Ear pain [Not Recovered/Not Resolved]
  - Fatigue [Not Recovered/Not Resolved]
  - Tenderness [Not Recovered/Not Resolved]
  - Rash [Not Recovered/Not Resolved]

NARRATIVE: CASE EVENT DATE: 201710
